FAERS Safety Report 4712277-3 (Version None)
Quarter: 2005Q3

REPORT INFORMATION
  Report Type: 
  Country: None (occurrence: None)
  Receive Date: 20050712
  Receipt Date: 20050623
  Transmission Date: 20060218
  Serious: Yes (Death, Hospitalization)
  Sender: FDA-Public Use
  Company Number: US140008

PATIENT
  Age: 55 Year
  Sex: Male

DRUGS (1)
  1. ENBREL [Suspect]
     Indication: RHEUMATOID ARTHRITIS

REACTIONS (13)
  - ALOPECIA [None]
  - ANTINEUTROPHIL CYTOPLASMIC ANTIBODY POSITIVE [None]
  - ARTHRITIS BACTERIAL [None]
  - GLOMERULONEPHRITIS FOCAL [None]
  - GLOMERULONEPHRITIS RAPIDLY PROGRESSIVE [None]
  - HAEMOPTYSIS [None]
  - HERPES ZOSTER [None]
  - INFECTION [None]
  - PERIPHERAL SENSORY NEUROPATHY [None]
  - PULMONARY ALVEOLAR HAEMORRHAGE [None]
  - PULMONARY VASCULITIS [None]
  - RASH MACULO-PAPULAR [None]
  - RENAL FAILURE [None]
